FAERS Safety Report 17220462 (Version 1)
Quarter: 2019Q4

REPORT INFORMATION
  Report Type: Spontaneous
  Country: CN (occurrence: CN)
  Receive Date: 20191231
  Receipt Date: 20191231
  Transmission Date: 20200122
  Serious: No
  Sender: FDA-Public Use
  Company Number: CN-B.BRAUN MEDICAL INC.-2078382

PATIENT
  Age: 2 Month
  Sex: Female
  Weight: .92 kg

DRUGS (1)
  1. NUTRILIPID I.V. FAT EMULSION [Suspect]
     Active Substance: SOYBEAN OIL
     Indication: PARENTERAL NUTRITION
     Route: 051
     Dates: start: 20191026, end: 20191205

REACTIONS (1)
  - Total bile acids increased [Recovered/Resolved]

NARRATIVE: CASE EVENT DATE: 20191205
